FAERS Safety Report 5647361-3 (Version None)
Quarter: 2008Q1

REPORT INFORMATION
  Report Type: 
  Country: None (occurrence: None)
  Receive Date: 20080303
  Receipt Date: 20080225
  Transmission Date: 20080703
  Serious: No
  Sender: FDA-Public Use
  Company Number: US-BAXTER-2008BH001665

PATIENT
  Age: 69 Year
  Sex: Female

DRUGS (9)
  1. HEPARIN SODIUM [Suspect]
     Indication: THROMBOSIS PROPHYLAXIS
     Route: 042
     Dates: start: 20080220
  2. HEPARIN SODIUM [Suspect]
     Indication: FISTULOGRAM
     Route: 042
     Dates: start: 20080220
  3. HEPARIN SODIUM [Suspect]
     Indication: INTRAVENOUS CATHETER MANAGEMENT
     Route: 042
     Dates: start: 20080220
  4. FENTANYL [Concomitant]
     Indication: SEDATION
     Route: 042
     Dates: start: 20080220, end: 20080220
  5. VERSED [Concomitant]
     Indication: SEDATION
     Route: 042
     Dates: start: 20080220, end: 20080220
  6. VISIPAQUE                               /USA/ [Concomitant]
     Indication: FISTULOGRAM
     Dosage: DOSE UNIT:UNKNOWN
     Route: 042
     Dates: start: 20080220, end: 20080220
  7. TISSUE PLASMINOGEN ACTIVATOR, RECOMBINATIVE [Concomitant]
     Indication: FISTULOGRAM
     Route: 042
     Dates: start: 20080220, end: 20080220
  8. LIDOCAINE [Concomitant]
     Indication: ANAESTHESIA
     Dosage: DOSE UNIT:UNKNOWN
     Route: 042
     Dates: start: 20080220, end: 20080220
  9. SODIUM CHLORIDE INJ [Concomitant]
     Indication: INTRAVENOUS CATHETER MANAGEMENT
     Route: 042
     Dates: start: 20080220, end: 20080220

REACTIONS (2)
  - PRURITUS [None]
  - RASH [None]
